FAERS Safety Report 23230582 (Version 6)
Quarter: 2024Q2

REPORT INFORMATION
  Report Type: Report from Study
  Country: CA (occurrence: CA)
  Receive Date: 20231127
  Receipt Date: 20240419
  Transmission Date: 20240716
  Serious: Yes (Other)
  Sender: FDA-Public Use
  Company Number: CA-SANDOZ-SDZ2023CA050605

PATIENT
  Sex: Female

DRUGS (2)
  1. HYRIMOZ [Suspect]
     Active Substance: ADALIMUMAB-ADAZ
     Dosage: 40 MG, BID
     Route: 058
     Dates: start: 20231201
  2. HYRIMOZ [Suspect]
     Active Substance: ADALIMUMAB-ADAZ
     Indication: Ankylosing spondylitis
     Dosage: 40 MG
     Route: 058
     Dates: start: 20231027

REACTIONS (6)
  - Mammoplasty [Unknown]
  - Postoperative wound infection [Unknown]
  - General physical health deterioration [Unknown]
  - Therapeutic product effect incomplete [Unknown]
  - Therapy interrupted [Unknown]
  - Off label use [Unknown]
